FAERS Safety Report 8195851-4 (Version None)
Quarter: 2012Q1

REPORT INFORMATION
  Report Type: 
  Country: None (occurrence: None)
  Receive Date: 20120308
  Receipt Date: 20100430
  Transmission Date: 20120608
  Serious: Yes (Other)
  Sender: FDA-Public Use
  Company Number: PHHY2010AU093612

PATIENT
  Sex: Female

DRUGS (3)
  1. ZOLEDRONOC ACID [Suspect]
     Dosage: 5 MG, THIRD INFUSION
     Route: 042
     Dates: start: 20110831
  2. ZOLEDRONOC ACID [Suspect]
     Dosage: 5 MG, FIRST INFUSION
     Route: 042
     Dates: start: 20090417
  3. ZOLEDRONOC ACID [Suspect]
     Dosage: 5 MG, SECOND INFUSION
     Route: 042
     Dates: start: 20100819

REACTIONS (2)
  - ADRENAL MASS [None]
  - MALAISE [None]
